FAERS Safety Report 17291576 (Version 1)
Quarter: 2020Q1

REPORT INFORMATION
  Report Type: Report from Study
  Country: US (occurrence: US)
  Receive Date: 20200121
  Receipt Date: 20200121
  Transmission Date: 20200409
  Serious: Yes (Hospitalization)
  Sender: FDA-Public Use
  Company Number: US-BAYER-2019-196668

PATIENT
  Age: 34 Year
  Sex: Male

DRUGS (8)
  1. MAGNESIUM [Concomitant]
     Active Substance: MAGNESIUM
     Dosage: UNK
  2. NEXAVAR [Suspect]
     Active Substance: SORAFENIB
     Dosage: 200 MG BID
     Route: 048
     Dates: start: 2019
  3. URSODIOL. [Concomitant]
     Active Substance: URSODIOL
     Dosage: UNK
  4. CARDIZEM CD [Concomitant]
     Active Substance: DILTIAZEM HYDROCHLORIDE
  5. FOLIC ACID. [Concomitant]
     Active Substance: FOLIC ACID
     Dosage: UNK
  6. NEXAVAR [Suspect]
     Active Substance: SORAFENIB
     Dosage: 200 MG, BID
     Route: 048
     Dates: start: 20191015
  7. SEPTRA DS [Concomitant]
     Active Substance: SULFAMETHOXAZOLE\TRIMETHOPRIM
     Dosage: UNK
  8. NOXAFIL [Concomitant]
     Active Substance: POSACONAZOLE
     Dosage: UNK

REACTIONS (3)
  - Abdominal pain upper [Not Recovered/Not Resolved]
  - Off label use [None]
  - Hypertension [Not Recovered/Not Resolved]

NARRATIVE: CASE EVENT DATE: 20191015
